FAERS Safety Report 17298168 (Version 1)
Quarter: 2020Q1

REPORT INFORMATION
  Report Type: Spontaneous
  Country: FR (occurrence: FR)
  Receive Date: 20200122
  Receipt Date: 20200122
  Transmission Date: 20200409
  Serious: Yes (Other)
  Sender: FDA-Public Use
  Company Number: FR-ACCORD-170299

PATIENT
  Age: 72 Year
  Sex: Female
  Weight: 50.5 kg

DRUGS (9)
  1. PREGABALIN. [Concomitant]
     Active Substance: PREGABALIN
  2. LAROXYL [Concomitant]
     Active Substance: AMITRIPTYLINE HYDROCHLORIDE
     Dosage: DRINKABLE SOLUTION
  3. AZACTAM [Suspect]
     Active Substance: AZTREONAM
     Indication: ABSCESS
     Dosage: POWDER AND SOLUTION FOR PARENTERAL USE
     Route: 042
     Dates: start: 20191211, end: 20191220
  4. OXYNORM [Concomitant]
     Active Substance: OXYCODONE HYDROCHLORIDE
     Dosage: DIVISIBLE COATED TABLET
  5. OXYCODONE [Concomitant]
     Active Substance: OXYCODONE
  6. DAPTOMYCINE ACCORD [Suspect]
     Active Substance: DAPTOMYCIN
     Indication: ABSCESS
     Route: 042
     Dates: start: 20191211, end: 20191220
  7. CIFLOX [Suspect]
     Active Substance: CIPROFLOXACIN
     Indication: ABSCESS
     Dosage: DIVISIBLE COATED TABLET
     Route: 048
     Dates: start: 20191209, end: 20191220
  8. PARACETAMOL [Concomitant]
     Active Substance: ACETAMINOPHEN
  9. RECIVIT [Concomitant]
     Active Substance: FENTANYL CITRATE

REACTIONS (1)
  - Hepatocellular injury [Recovered/Resolved]

NARRATIVE: CASE EVENT DATE: 20191213
